FAERS Safety Report 9067330 (Version 4)
Quarter: 2013Q2

REPORT INFORMATION
  Report Type: Spontaneous
  Country: JP (occurrence: JP)
  Receive Date: 20130214
  Receipt Date: 20130607
  Transmission Date: 20140414
  Serious: Yes (Other)
  Sender: FDA-Public Use
  Company Number: JP-B.I. PHARMACEUTICALS,INC./RIDGEFIELD-2013-BI-04044YA

PATIENT
  Age: 88 Year
  Sex: Male
  Weight: 43.3 kg

DRUGS (8)
  1. HARNAL (TAMSULOSIN) ORODISPERSABLE CR [Suspect]
     Indication: BENIGN PROSTATIC HYPERPLASIA
     Dosage: 0.2 MG
     Route: 048
     Dates: start: 20130131
  2. BETANIS [Suspect]
     Indication: NOCTURIA
     Dosage: 50 MG
     Route: 048
     Dates: start: 20130202, end: 20130204
  3. EVIPROSTAT (SERENOA REPENS) [Concomitant]
     Dates: end: 2013
  4. DIOVAN (VALSARTAN) [Concomitant]
     Dates: start: 20130131
  5. MAGLAX [Concomitant]
     Dates: start: 20130131
  6. GASMOTIN (MOSAPRIDE CITRATE) [Concomitant]
     Dates: start: 20130131
  7. MUCOSTA (REBAMIPIDE) [Concomitant]
     Dates: start: 20130131
  8. MEROPEN /01250501/ (MEROPENEM) [Concomitant]
     Dosage: ROUTE: INJECTION
     Dates: start: 20130129, end: 20130204

REACTIONS (1)
  - Urinary retention [Recovered/Resolved]
